FAERS Safety Report 11434125 (Version 1)
Quarter: 2015Q3

REPORT INFORMATION
  Report Type: Spontaneous
  Country: US (occurrence: None)
  Receive Date: 20150828
  Receipt Date: 20150828
  Transmission Date: 20151125
  Serious: Yes (Other)
  Sender: FDA-Public Use
  Company Number: None

PATIENT
  Age: 61 Year
  Sex: Female
  Weight: 73.48 kg

DRUGS (6)
  1. A CALCIUM FORMULA [Concomitant]
  2. EXTRA B^S [Concomitant]
  3. HARVONI [Suspect]
     Active Substance: LEDIPASVIR\SOFOSBUVIR
     Indication: HEPATITIS C
     Dosage: 1 PILL  ONCE DAILY TAKEN BY MOUTH
     Route: 048
     Dates: start: 20150417, end: 20150515
  4. MULTI VIT [Concomitant]
  5. PROBIOTICS [Concomitant]
     Active Substance: PROBIOTICS NOS
  6. SILYMARIN EXTRACT [Concomitant]

REACTIONS (4)
  - Weight increased [None]
  - Alopecia [None]
  - Hepatitis C [None]
  - Condition aggravated [None]

NARRATIVE: CASE EVENT DATE: 20150811
